FAERS Safety Report 7318301-6 (Version None)
Quarter: 2011Q1

REPORT INFORMATION
  Report Type: 
  Country: None (occurrence: None)
  Receive Date: 20110228
  Receipt Date: 20110217
  Transmission Date: 20110831
  Serious: No
  Sender: FDA-Public Use
  Company Number: US-BIOGENIDEC-2011BI006456

PATIENT
  Age: 47 Year
  Sex: Female

DRUGS (2)
  1. AVONEX [Suspect]
     Indication: MULTIPLE SCLEROSIS
     Route: 030
     Dates: start: 20040101
  2. AVONEX [Suspect]
     Route: 030
     Dates: start: 19980101, end: 20040101

REACTIONS (9)
  - DEPRESSION [None]
  - HYPERHIDROSIS [None]
  - HEADACHE [None]
  - WEIGHT DECREASED [None]
  - MUSCULAR WEAKNESS [None]
  - VOMITING [None]
  - GAIT DISTURBANCE [None]
  - INJECTION SITE HAEMATOMA [None]
  - CHILLS [None]
